FAERS Safety Report 4280971-7 (Version None)
Quarter: 2004Q1

REPORT INFORMATION
  Report Type: 
  Country: None (occurrence: None)
  Receive Date: 20040122
  Receipt Date: 20031118
  Transmission Date: 20041129
  Serious: No
  Sender: FDA-Public Use
  Company Number: 03H-163-0241615-00

PATIENT
  Age: 7 Year
  Sex: Female

DRUGS (1)
  1. MIVACRON [Suspect]
     Indication: ANAESTHESIA
     Dates: start: 20031118, end: 20031118

REACTIONS (1)
  - DRUG EFFECT PROLONGED [None]
